FAERS Safety Report 17691834 (Version 2)
Quarter: 2020Q2

REPORT INFORMATION
  Report Type: Report from Study
  Country: US (occurrence: US)
  Receive Date: 20200422
  Receipt Date: 20200423
  Transmission Date: 20200714
  Serious: No
  Sender: FDA-Public Use
  Company Number: NVSC2020US107883

PATIENT
  Age: 44 Year
  Sex: Female

DRUGS (1)
  1. MAYZENT [Suspect]
     Active Substance: SIPONIMOD
     Indication: PRODUCT USED FOR UNKNOWN INDICATION
     Dosage: 2 MG, QD
     Route: 048
     Dates: start: 20200418, end: 20200418

REACTIONS (2)
  - Drug dose titration not performed [Unknown]
  - Fatigue [Unknown]

NARRATIVE: CASE EVENT DATE: 20200418
